FAERS Safety Report 8405453 (Version 3)
Quarter: 2013Q4

REPORT INFORMATION
  Report Type: Report from Study
  Country: US (occurrence: US)
  Receive Date: 20120203
  Receipt Date: 20131105
  Transmission Date: 20140711
  Serious: Yes (Other)
  Sender: FDA-Public Use
  Company Number: US-009507513-2012SP005042

PATIENT
  Sex: Male

DRUGS (7)
  1. PEG-INTRON [Suspect]
     Indication: HEPATITIS C
     Dosage: UNK
     Dates: start: 20020104
  2. REBETOL [Suspect]
     Indication: HEPATITIS C
     Dosage: UNK
     Dates: start: 20020104
  3. REBETOL [Suspect]
     Dosage: UNK
     Dates: start: 20050401, end: 20060303
  4. REBETOL [Suspect]
     Dosage: 3 DF, QD
     Dates: start: 20120322
  5. VICTRELIS [Suspect]
     Indication: HEPATITIS C
     Dosage: UNK
     Dates: start: 20120419
  6. PEGASYS [Suspect]
     Indication: HEPATITIS C
     Dosage: UNK
     Route: 065
     Dates: start: 20050401, end: 20060303
  7. PEGASYS [Suspect]
     Dosage: UNK
     Dates: start: 20120322

REACTIONS (29)
  - Basedow^s disease [Unknown]
  - Diabetes mellitus [Unknown]
  - Mental impairment [Unknown]
  - Red blood cell count decreased [Unknown]
  - Disease recurrence [Unknown]
  - Oedema peripheral [Unknown]
  - Pruritus [Unknown]
  - Red blood cell count decreased [Unknown]
  - Diarrhoea [Unknown]
  - Blood count abnormal [Unknown]
  - Rectal haemorrhage [Unknown]
  - Appetite disorder [Unknown]
  - Weight decreased [Unknown]
  - Alopecia [Unknown]
  - Pruritus [Unknown]
  - Faeces hard [Recovered/Resolved]
  - Rectal haemorrhage [Recovered/Resolved]
  - Anorectal discomfort [Unknown]
  - Diarrhoea [Unknown]
  - Red blood cell count decreased [Unknown]
  - Anorectal discomfort [Unknown]
  - Dysgeusia [Unknown]
  - Weight decreased [Unknown]
  - Asthenia [Unknown]
  - Alopecia [Unknown]
  - White blood cell count decreased [Unknown]
  - Pruritus [Recovered/Resolved]
  - Asthenia [Unknown]
  - Platelet count decreased [Unknown]
